FAERS Safety Report 8926306 (Version 1)
Quarter: 2012Q4

REPORT INFORMATION
  Report Type: 
  Country: US (occurrence: US)
  Receive Date: 20121127
  Receipt Date: 20121127
  Transmission Date: 20130627
  Serious: Yes (Hospitalization)
  Sender: FDA-Public Use
  Company Number: US-GLAXOSMITHKLINE-A0817869A

PATIENT
  Age: 52 Year
  Sex: Male
  Weight: 96.4 kg

DRUGS (2)
  1. AVANDIA [Suspect]
     Indication: DIABETES MELLITUS
     Dosage: 4MG Per day
     Route: 048
     Dates: start: 2002
  2. NITROGLYCERIN [Concomitant]
     Dates: start: 20001230

REACTIONS (6)
  - Angina pectoris [Unknown]
  - Myocardial infarction [Unknown]
  - Asthenia [Unknown]
  - Fatigue [Unknown]
  - Asthenia [Unknown]
  - Disability [Unknown]
